FAERS Safety Report 26040700 (Version 1)
Quarter: 2025Q4

REPORT INFORMATION
  Report Type: Spontaneous
  Country: EU (occurrence: EU)
  Receive Date: 20251113
  Receipt Date: 20251113
  Transmission Date: 20260118
  Serious: Yes (Hospitalization, Other)
  Sender: TEVA
  Company Number: None

PATIENT
  Age: 43 Year
  Sex: Female

DRUGS (9)
  1. METHOTREXATE [Suspect]
     Active Substance: METHOTREXATE
     Indication: Crohn^s disease
     Dosage: UNK
     Route: 065
  2. Salofalk [Concomitant]
     Indication: Product used for unknown indication
     Dosage: 500 MG (3 X 2 TBL AT 500 MG)
     Route: 065
  3. PREDNISONE [Suspect]
     Active Substance: PREDNISONE
     Indication: Crohn^s disease
     Dosage: UNK
     Route: 065
  4. USTEKINUMAB [Suspect]
     Active Substance: USTEKINUMAB
     Indication: Product used for unknown indication
     Route: 058
  5. USTEKINUMAB [Suspect]
     Active Substance: USTEKINUMAB
     Indication: Product used for unknown indication
     Dosage: UNK (START DATE: ??-DEC-2023)
     Route: 065
  6. IMURAN [Suspect]
     Active Substance: AZATHIOPRINE
     Indication: Crohn^s disease
     Dosage: UNK
     Route: 065
  7. OMEPRAZOLE [Concomitant]
     Active Substance: OMEPRAZOLE
     Indication: Product used for unknown indication
     Dosage: UNK
     Route: 065
  8. Concor combi [Concomitant]
     Indication: Product used for unknown indication
     Dosage: 5/5
     Route: 065
  9. REMICADE [Suspect]
     Active Substance: INFLIXIMAB
     Indication: Product used for unknown indication
     Dosage: UNK
     Route: 065
     Dates: start: 201808, end: 202212

REACTIONS (14)
  - Angioimmunoblastic T-cell lymphoma [Unknown]
  - Cough [Unknown]
  - Crohn^s disease [Unknown]
  - Drug ineffective [Unknown]
  - Myalgia [Unknown]
  - Hypertension [Unknown]
  - Supraventricular tachycardia [Unknown]
  - Pneumonia streptococcal [Unknown]
  - Lupus-like syndrome [Unknown]
  - Arthralgia [Unknown]
  - Fistula [Unknown]
  - Arthropathy [Unknown]
  - Leukopenia [Unknown]
  - Dyspepsia [Unknown]

NARRATIVE: CASE EVENT DATE: 20210201
